FAERS Safety Report 10250239 (Version 2)
Quarter: 2014Q2

REPORT INFORMATION
  Report Type: Spontaneous
  Country: US (occurrence: US)
  Receive Date: 20140620
  Receipt Date: 20140620
  Transmission Date: 20141212
  Serious: No
  Sender: FDA-Public Use
  Company Number: US-ASTRAZENECA-2014SE01265

PATIENT
  Age: 71 Year
  Sex: Male
  Weight: 81.6 kg

DRUGS (2)
  1. SYMBICORT [Suspect]
     Indication: CHRONIC OBSTRUCTIVE PULMONARY DISEASE
     Dosage: UNKNOW, ONCE A DAY
     Route: 055
  2. SYMBICORT [Suspect]
     Indication: CHRONIC OBSTRUCTIVE PULMONARY DISEASE
     Dosage: 160/4.5 MCG, 2 PUFFS BID
     Route: 055
     Dates: start: 2013

REACTIONS (5)
  - Oxygen saturation abnormal [Unknown]
  - Respiratory tract congestion [Unknown]
  - Cough [Unknown]
  - Cough [Recovered/Resolved]
  - Drug effect incomplete [Not Recovered/Not Resolved]
